FAERS Safety Report 13088322 (Version 4)
Quarter: 2017Q2

REPORT INFORMATION
  Report Type: Report from Study
  Country: US (occurrence: US)
  Receive Date: 20170105
  Receipt Date: 20170404
  Transmission Date: 20170830
  Serious: No
  Sender: FDA-Public Use
  Company Number: PHEH2017US000547

PATIENT
  Sex: Female

DRUGS (1)
  1. COSENTYX [Suspect]
     Active Substance: SECUKINUMAB
     Indication: PRODUCT USED FOR UNKNOWN INDICATION
     Dosage: 300 MG, QW
     Route: 058

REACTIONS (11)
  - Rash [Unknown]
  - Infection [Unknown]
  - Scratch [Unknown]
  - Skin haemorrhage [Unknown]
  - Drug ineffective [Unknown]
  - Agitation [Unknown]
  - Feeling abnormal [Unknown]
  - Stress [Unknown]
  - Condition aggravated [Unknown]
  - Emotional distress [Unknown]
  - Inappropriate schedule of drug administration [Unknown]
